FAERS Safety Report 8452132-9 (Version None)
Quarter: 2012Q2

REPORT INFORMATION
  Report Type: 
  Country: None (occurrence: None)
  Receive Date: 20120620
  Receipt Date: 20120412
  Transmission Date: 20120825
  Serious: No
  Sender: FDA-Public Use
  Company Number: US-VERTEX PHARMACEUTICALS INC.-AE-2012-004659

PATIENT
  Sex: Male
  Weight: 113.5 kg

DRUGS (7)
  1. LISINOPRIL [Concomitant]
     Indication: BLOOD PRESSURE
  2. DIABETES MED [Concomitant]
  3. INCIVEK [Suspect]
     Indication: HEPATITIS C
     Route: 048
     Dates: start: 20120330
  4. ASPIRIN [Concomitant]
     Route: 048
  5. RIBAVIRIN [Concomitant]
     Indication: HEPATITIS C
     Route: 048
     Dates: start: 20120330
  6. CRESTOR [Concomitant]
     Indication: BLOOD CHOLESTEROL
  7. PEGINTERFERON ALFA-2A [Concomitant]
     Indication: HEPATITIS C
     Route: 058
     Dates: start: 20120330

REACTIONS (1)
  - RASH GENERALISED [None]
